FAERS Safety Report 16268762 (Version 2)
Quarter: 2019Q2

REPORT INFORMATION
  Report Type: Report from Study
  Country: US (occurrence: US)
  Receive Date: 20190503
  Receipt Date: 20190507
  Transmission Date: 20190711
  Serious: Yes (Hospitalization)
  Sender: FDA-Public Use
  Company Number: US-ROCHE-2308456

PATIENT

DRUGS (2)
  1. VEMURAFENIB. [Suspect]
     Active Substance: VEMURAFENIB
     Indication: PLASMA CELL MYELOMA
     Dosage: DATE OF MOST RECENT DOSE: 28/OCT/2018
     Route: 048
     Dates: start: 20180711
  2. COBIMETINIB. [Suspect]
     Active Substance: COBIMETINIB
     Indication: PLASMA CELL MYELOMA
     Dosage: DATE OF MOST RECENT DOSE: 28/OCT/2018
     Route: 048
     Dates: start: 20180711

REACTIONS (1)
  - Upper gastrointestinal haemorrhage [Not Recovered/Not Resolved]

NARRATIVE: CASE EVENT DATE: 20181029
